FAERS Safety Report 23266727 (Version 1)
Quarter: 2023Q4

REPORT INFORMATION
  Report Type: Spontaneous
  Country: US (occurrence: US)
  Receive Date: 20231206
  Receipt Date: 20231206
  Transmission Date: 20240110
  Serious: No
  Sender: FDA-Public Use
  Company Number: US-SA-SAC20231128000496

PATIENT
  Sex: Male
  Weight: 106.5 kg

DRUGS (8)
  1. DUPIXENT [Suspect]
     Active Substance: DUPILUMAB
     Indication: Nasal polyps
     Dosage: 300 MG, QOW
     Route: 058
  2. TAURINE [Concomitant]
     Active Substance: TAURINE
  3. VITAMIN K 2 [Concomitant]
  4. VITAMINS [Concomitant]
     Active Substance: VITAMINS
  5. ACYCLOVIR [Concomitant]
     Active Substance: ACYCLOVIR
  6. TADALAFIL [Concomitant]
     Active Substance: TADALAFIL
  7. ALBUTEROL SULFATE [Concomitant]
     Active Substance: ALBUTEROL SULFATE
  8. MONTELUKAST SODIUM [Concomitant]
     Active Substance: MONTELUKAST SODIUM

REACTIONS (1)
  - Injection site pain [Not Recovered/Not Resolved]
